FAERS Safety Report 19176942 (Version 2)
Quarter: 2021Q2

REPORT INFORMATION
  Report Type: Report from Study
  Country: BR (occurrence: BR)
  Receive Date: 20210424
  Receipt Date: 20210527
  Transmission Date: 20210717
  Serious: Yes (Other)
  Sender: FDA-Public Use
  Company Number: BR-UCBSA-2021017976

PATIENT
  Sex: Female
  Weight: 58 kg

DRUGS (8)
  1. CERTOLIZUMAB PEGOL RA [Suspect]
     Active Substance: CERTOLIZUMAB PEGOL
     Indication: RHEUMATOID ARTHRITIS
     Dosage: UNK, MONTHLY (QM)
     Route: 058
  2. SELOZOK [Concomitant]
     Active Substance: METOPROLOL SUCCINATE
     Indication: CARDIAC DISORDER
     Dosage: 1 TABLET, ONCE DAILY (QD)
     Route: 048
  3. DIOVAN [Concomitant]
     Active Substance: VALSARTAN
     Indication: HYPERTENSION
     Dosage: 320 1 TABLET, ONCE DAILY (QD)
     Route: 048
     Dates: start: 2017
  4. GLIBENCLAMIDA [Concomitant]
     Active Substance: GLYBURIDE
     Indication: DIABETES MELLITUS
     Dosage: 3 TABLETS A DAY
     Route: 048
  5. SINVASTATINA [Concomitant]
     Active Substance: SIMVASTATIN
     Indication: CARDIAC DISORDER
     Dosage: 1 TABLET ONCE DAILY (QD)
     Route: 048
     Dates: start: 2016
  6. ASPIRIN. [Concomitant]
     Active Substance: ASPIRIN
     Indication: BLOOD DISORDER
     Dosage: 1 TABLET, ONCE DAILY (QD)
     Route: 048
  7. PIOGLITAZONA [PIOGLITAZONE] [Concomitant]
     Indication: DIABETES MELLITUS
     Dosage: 30 MILLIGRAM, ONCE DAILY (QD)
     Route: 048
     Dates: start: 2017
  8. GLICLAZIDA [Concomitant]
     Active Substance: GLICLAZIDE
     Indication: DIABETES MELLITUS
     Dosage: 30 MILLIGRAM, 3X/DAY (TID)
     Route: 048

REACTIONS (1)
  - Cutaneous tuberculosis [Not Recovered/Not Resolved]
